FAERS Safety Report 16272364 (Version 1)
Quarter: 2019Q2

REPORT INFORMATION
  Report Type: Spontaneous
  Country: US (occurrence: US)
  Receive Date: 20190506
  Receipt Date: 20190506
  Transmission Date: 20190711
  Serious: Yes (Hospitalization, Other)
  Sender: FDA-Public Use
  Company Number: US-STRIDES ARCOLAB LIMITED-2019SP003059

PATIENT
  Sex: Female

DRUGS (3)
  1. PIROXICAM. [Suspect]
     Active Substance: PIROXICAM
     Indication: SCLERITIS
  2. PIROXICAM. [Suspect]
     Active Substance: PIROXICAM
     Indication: MOUTH ULCERATION
     Dosage: UNK
     Route: 065
  3. AZATHIOPRINE. [Suspect]
     Active Substance: AZATHIOPRINE
     Indication: PRODUCT USED FOR UNKNOWN INDICATION
     Dosage: UNK
     Route: 065

REACTIONS (2)
  - Hepatotoxicity [Unknown]
  - Off label use [Unknown]
